FAERS Safety Report 19007345 (Version 1)
Quarter: 2021Q1

REPORT INFORMATION
  Report Type: Spontaneous
  Country: US (occurrence: US)
  Receive Date: 20210315
  Receipt Date: 20210315
  Transmission Date: 20210420
  Serious: Yes (Hospitalization)
  Sender: FDA-Public Use
  Company Number: None

PATIENT
  Age: 12 Year
  Sex: Female

DRUGS (7)
  1. KATERZIA [Concomitant]
     Active Substance: AMLODIPINE BENZOATE
     Dates: start: 20210308
  2. SOD CITRATE [Concomitant]
     Dates: start: 20201123
  3. EPOGEN [Suspect]
     Active Substance: ERYTHROPOIETIN
     Indication: ANAEMIA
     Dosage: ?          OTHER FREQUENCY:Q7DAYS;?
     Route: 058
     Dates: start: 20210212
  4. CALCITRIOL. [Concomitant]
     Active Substance: CALCITRIOL
     Dates: start: 20210305
  5. CEPHALEXIN. [Concomitant]
     Active Substance: CEPHALEXIN
     Dates: start: 20201102
  6. VITAMIN D [Concomitant]
     Active Substance: VITAMIN D NOS
     Dates: start: 20210305
  7. CALCIUM CARB SUS [Concomitant]
     Dates: start: 20210305

REACTIONS (1)
  - Blood calcium decreased [None]

NARRATIVE: CASE EVENT DATE: 20210301
